FAERS Safety Report 7653283 (Version 4)
Quarter: 2013Q2

REPORT INFORMATION
  Report Type: Spontaneous
  Country: NL (occurrence: NL)
  Receive Date: 20101102
  Receipt Date: 20130409
  Transmission Date: 20140414
  Serious: Yes (Life-Threatening, Hospitalization)
  Sender: FDA-Public Use
  Company Number: NL-ALEXION PHARMACEUTICALS INC.-A201001370

PATIENT
  Age: 15 Year
  Sex: Female

DRUGS (3)
  1. SOLIRIS 300MG [Suspect]
     Indication: TRANSPLANT REJECTION
     Dosage: UNK
     Route: 042
     Dates: start: 20100514
  2. SOLIRIS 300MG [Suspect]
     Indication: PROPHYLAXIS AGAINST TRANSPLANT REJECTION
     Dosage: 900 MG, Q2W
     Route: 042
     Dates: end: 20100903
  3. SOLIRIS 300MG [Suspect]
     Indication: OFF LABEL USE

REACTIONS (4)
  - Respiratory failure [Recovered/Resolved]
  - Septic shock [Recovered/Resolved]
  - Meningococcal sepsis [Recovered/Resolved]
  - Meningitis meningococcal [Recovered/Resolved]
